FAERS Safety Report 17923931 (Version 1)
Quarter: 2020Q2

REPORT INFORMATION
  Report Type: Spontaneous
  Country: JP (occurrence: JP)
  Receive Date: 20200622
  Receipt Date: 20200622
  Transmission Date: 20200714
  Serious: Yes (Death)
  Sender: FDA-Public Use
  Company Number: JP-ASTRAZENECA-2019SF55268

PATIENT
  Age: 21565 Day
  Sex: Female
  Weight: 46 kg

DRUGS (2)
  1. LYNPARZA [Suspect]
     Active Substance: OLAPARIB
     Indication: OVARIAN CANCER
     Dosage: DOSE UNKNOWN
     Route: 048
     Dates: start: 20191127, end: 20191130
  2. LYNPARZA [Suspect]
     Active Substance: OLAPARIB
     Indication: OVARIAN CANCER
     Route: 048
     Dates: start: 20191023, end: 20191028

REACTIONS (2)
  - Malignant neoplasm progression [Fatal]
  - Arthritis [Recovered/Resolved]

NARRATIVE: CASE EVENT DATE: 20191026
